FAERS Safety Report 20419083 (Version 1)
Quarter: 2022Q1

REPORT INFORMATION
  Report Type: Spontaneous
  Country: GB (occurrence: GB)
  Receive Date: 20220203
  Receipt Date: 20220203
  Transmission Date: 20220423
  Serious: Yes (Other)
  Sender: FDA-Public Use
  Company Number: GB-ENDO PHARMACEUTICALS INC-2022-000535

PATIENT
  Age: 41 Year
  Sex: Male
  Weight: 102 kg

DRUGS (4)
  1. TESTIM [Suspect]
     Active Substance: TESTOSTERONE
     Indication: Blood test
     Dosage: UNK UNKNOWN, UNKNOWN
     Route: 065
  2. MODERNA COVID-19 VACCINE [Suspect]
     Active Substance: ELASOMERAN
     Indication: Product used for unknown indication
     Dosage: 3B, UNKNOWN
     Route: 065
     Dates: start: 20211217
  3. ASTRAZENECA COVID-19 VACCINE [Concomitant]
     Active Substance: AZD-1222
     Indication: Product used for unknown indication
     Dosage: UNK UNKNOWN, UNKNOWN
     Route: 065
     Dates: start: 20210422
  4. ASTRAZENECA COVID-19 VACCINE [Concomitant]
     Active Substance: AZD-1222
     Dosage: UNK UNKNOWN, UNKNOWN
     Route: 065
     Dates: start: 20210616

REACTIONS (4)
  - Lethargy [Recovered/Resolved]
  - Loss of libido [Recovered/Resolved]
  - Blood testosterone decreased [Not Recovered/Not Resolved]
  - Mood altered [Unknown]

NARRATIVE: CASE EVENT DATE: 20211221
